FAERS Safety Report 14782180 (Version 1)
Quarter: 2018Q2

REPORT INFORMATION
  Report Type: Spontaneous
  Country: GB (occurrence: GB)
  Receive Date: 20180420
  Receipt Date: 20180420
  Transmission Date: 20180711
  Serious: Yes (Disabling, Other)
  Sender: FDA-Public Use
  Company Number: GB-TEVA-2018-GB-883574

PATIENT
  Age: 74 Year
  Sex: Male
  Weight: 97.8 kg

DRUGS (13)
  1. HYDROXYCHLOROQUINE [Concomitant]
     Active Substance: HYDROXYCHLOROQUINE
     Dosage: 400 MILLIGRAM DAILY;
     Route: 065
     Dates: start: 20180109
  2. OMEPRAZOLE. [Concomitant]
     Active Substance: OMEPRAZOLE
     Dosage: 20 MILLIGRAM DAILY;
     Route: 065
     Dates: start: 20180109
  3. DOXYCYCLINE. [Concomitant]
     Active Substance: DOXYCYCLINE
     Dosage: TWO TABLETS ONCE DAILY ON DAY ONE, THEN ONE DAILY THEREAFTER
     Route: 065
     Dates: start: 20171229
  4. ATORVASTATIN [Concomitant]
     Active Substance: ATORVASTATIN
     Dosage: 20 MILLIGRAM DAILY; AT NIGHT
     Route: 065
     Dates: start: 20180109
  5. UNIPHYLLIN CONTINUS [Concomitant]
     Active Substance: THEOPHYLLINE ANHYDROUS
     Dosage: 400 MILLIGRAM DAILY; AT NIGHT
     Route: 065
     Dates: start: 20180109
  6. VENTOLIN [Concomitant]
     Active Substance: ALBUTEROL SULFATE
     Route: 055
     Dates: start: 20180109
  7. FOLIC ACID. [Concomitant]
     Active Substance: FOLIC ACID
     Dosage: TAKEN THREE DAYS AFTER METHOTREXATE
     Route: 065
     Dates: start: 20180109
  8. SPIRIVA [Concomitant]
     Active Substance: TIOTROPIUM BROMIDE MONOHYDRATE
     Dosage: 1 DOSAGE FORMS DAILY;
     Route: 055
     Dates: start: 20180109
  9. DUORESP SPIROMAX [Concomitant]
     Active Substance: BUDESONIDE\FORMOTEROL
     Dosage: 2 DOSAGE FORMS DAILY; PUFF
     Route: 065
     Dates: start: 20180109
  10. METHOTREXATE. [Suspect]
     Active Substance: METHOTREXATE
     Route: 065
  11. SULFASALAZINE. [Concomitant]
     Active Substance: SULFASALAZINE
     Dosage: 2000 MILLIGRAM DAILY;
     Route: 065
     Dates: start: 20180109
  12. CO-AMILOFRUSE [Concomitant]
     Active Substance: AMILORIDE\FUROSEMIDE
     Dosage: 1 DOSAGE FORMS DAILY; 5MG/40MG , EACH MORNING
     Route: 065
     Dates: start: 20180109
  13. ALLOPURINOL. [Concomitant]
     Active Substance: ALLOPURINOL
     Dosage: 600 MILLIGRAM DAILY;
     Route: 065
     Dates: start: 20180109

REACTIONS (1)
  - Liver function test decreased [Unknown]

NARRATIVE: CASE EVENT DATE: 20180205
